FAERS Safety Report 14330253 (Version 1)
Quarter: 2017Q4

REPORT INFORMATION
  Report Type: Spontaneous
  Country: BR (occurrence: BR)
  Receive Date: 20171227
  Receipt Date: 20171227
  Transmission Date: 20180321
  Serious: Yes (Other)
  Sender: FDA-Public Use
  Company Number: BR-ALLERGAN-1773516US

PATIENT
  Age: 68 Year
  Sex: Male
  Weight: 76 kg

DRUGS (1)
  1. ESCITALOPRAM OXALATE - BP [Suspect]
     Active Substance: ESCITALOPRAM OXALATE
     Indication: DEPRESSION
     Dosage: 10 MG, QD
     Route: 048
     Dates: start: 20171117

REACTIONS (8)
  - Arrhythmia [Unknown]
  - Hyperhidrosis [Unknown]
  - Nausea [Unknown]
  - Tremor [Unknown]
  - Drug ineffective [Unknown]
  - Poor quality sleep [Unknown]
  - Burning sensation [Unknown]
  - Nervousness [Unknown]
